FAERS Safety Report 23982858 (Version 1)
Quarter: 2024Q2

REPORT INFORMATION
  Report Type: Report from Study
  Country: CR (occurrence: CR)
  Receive Date: 20240617
  Receipt Date: 20240617
  Transmission Date: 20240716
  Serious: Yes (Hospitalization, Other)
  Sender: FDA-Public Use
  Company Number: CR-BAYER-2024A086632

PATIENT
  Age: 28 Year
  Sex: Female

DRUGS (1)
  1. DIENOGEST\ESTRADIOL VALERATE [Suspect]
     Active Substance: DIENOGEST\ESTRADIOL VALERATE
     Indication: Contraception
     Dosage: 1 DF, QD
     Dates: start: 20220217, end: 20240503

REACTIONS (8)
  - Ectopic pregnancy under hormonal contraception [Recovered/Resolved]
  - Abortion of ectopic pregnancy [Recovered/Resolved]
  - Haemorrhage in pregnancy [Recovered/Resolved]
  - Feeling abnormal [Recovered/Resolved]
  - Post abortion haemorrhage [Recovered/Resolved]
  - Menstruation irregular [None]
  - Vaginal haemorrhage [None]
  - Drug ineffective [None]

NARRATIVE: CASE EVENT DATE: 20240508
